FAERS Safety Report 7208449-9 (Version None)
Quarter: 2011Q1

REPORT INFORMATION
  Report Type: 
  Country: None (occurrence: None)
  Receive Date: 20110104
  Receipt Date: 20101228
  Transmission Date: 20110831
  Serious: Yes (Other)
  Sender: FDA-Public Use
  Company Number: US-PERRIGO-10US015909

PATIENT
  Sex: Female
  Weight: 54.422 kg

DRUGS (7)
  1. POLYETHYLENE GLYCOL 3350 [Suspect]
     Indication: INTESTINAL DILATATION
     Dosage: 17 G, BID
     Route: 048
     Dates: start: 20101001
  2. POLYETHYLENE GLYCOL 3350 [Suspect]
     Indication: INTESTINAL FUNCTIONAL DISORDER
     Dosage: 510 G, SINGLE
     Route: 048
     Dates: start: 20101208, end: 20101208
  3. ETODOLAC [Concomitant]
     Indication: PAIN
     Dosage: UNK, ONE TABLET, PRN
     Route: 048
  4. AMITRIPTYLINE [Concomitant]
     Indication: MIGRAINE
     Dosage: 50 MG, QD
     Route: 048
  5. EX LAX [Concomitant]
     Indication: INTESTINAL DILATATION
     Dosage: UNK, 1 TABLET DAILY
     Route: 048
  6. POLYETHYLENE GLYCOL 3350 [Suspect]
     Indication: CONSTIPATION
  7. MIDRIN [Concomitant]
     Indication: MIGRAINE
     Dosage: UNK, 1 TABLET, PRN
     Route: 048

REACTIONS (6)
  - DIZZINESS [None]
  - INAPPROPRIATE SCHEDULE OF DRUG ADMINISTRATION [None]
  - OFF LABEL USE [None]
  - DEHYDRATION [None]
  - INCORRECT DRUG ADMINISTRATION DURATION [None]
  - INCORRECT DOSE ADMINISTERED [None]
